FAERS Safety Report 6609554-8 (Version None)
Quarter: 2010Q1

REPORT INFORMATION
  Report Type: 
  Country: None (occurrence: None)
  Receive Date: 20100302
  Receipt Date: 20100223
  Transmission Date: 20100710
  Serious: Yes (Hospitalization, Other)
  Sender: FDA-Public Use
  Company Number: GB-SANOFI-AVENTIS-200316931GDDC

PATIENT
  Age: 45 Year
  Sex: Female

DRUGS (9)
  1. DOCETAXEL [Interacting]
     Indication: BREAST CANCER METASTATIC
  2. OMEPRAZOLE [Suspect]
  3. CAELYX [Interacting]
     Indication: BREAST CANCER METASTATIC
     Route: 042
  4. ERYTHROMYCIN [Interacting]
     Indication: PROPHYLAXIS
     Dates: start: 19950101
  5. GRANISETRON [Concomitant]
     Indication: ANTIEMETIC SUPPORTIVE CARE
  6. DEXAMETHASONE [Concomitant]
     Indication: PREMEDICATION
  7. MORPHINE [Concomitant]
  8. IBUPROFEN [Concomitant]
  9. METOCLOPRAMIDE HYDROCHLORIDE [Concomitant]

REACTIONS (11)
  - ABDOMINAL DISTENSION [None]
  - ABDOMINAL PAIN [None]
  - DIARRHOEA [None]
  - DRUG INTERACTION [None]
  - ENTEROCOLITIS [None]
  - FEBRILE NEUTROPENIA [None]
  - HAEMATIDROSIS [None]
  - JAUNDICE CHOLESTATIC [None]
  - PSEUDOMEMBRANOUS COLITIS [None]
  - RASH ERYTHEMATOUS [None]
  - VOMITING [None]
